FAERS Safety Report 8816688 (Version 1)
Quarter: 2012Q4

REPORT INFORMATION
  Report Type: Spontaneous
  Country: US (occurrence: None)
  Receive Date: 20120928
  Receipt Date: 20120928
  Transmission Date: 20130627
  Serious: Yes (Hospitalization, Other)
  Sender: FDA-Public Use
  Company Number: 2012-001685

PATIENT
  Age: 58 Year
  Sex: Female

DRUGS (29)
  1. ACTONEL (RISEDRONATE SODIUM) TABLET, 150MG [Suspect]
     Indication: OSTEOPENIA
     Route: 048
     Dates: start: 20081006, end: 20111119
  2. ALENDRONATE [Suspect]
     Indication: OSTEOPENIA
     Dosage: 70 mg, 1/week, Oral
     Route: 048
     Dates: start: 20080210, end: 20080816
  3. FOSAMAX (ALENDRONATE SODIUM) [Suspect]
     Indication: OSTEOPENIA
     Route: 048
     Dates: start: 20060217, end: 20070819
  4. FOSAMAX (ALENDRONATE SODIUM) [Suspect]
     Indication: OSTEOPENIA
     Route: 048
  5. ACTIVELLA [Concomitant]
  6. LEXAPRO (ESCITALOPRAM OXALATE) [Concomitant]
  7. CELEBREX (CELECOXIB) [Concomitant]
  8. CLOBEX (CLOBETASOL PROPIONATE) [Concomitant]
  9. VANIQA (EFLORNITHINE HYDROCHLORIDE) [Concomitant]
  10. VITAMIN D (COLECALCIFEROL) [Concomitant]
  11. SINGULAIR (MONTELUKAST SODIUM) [Concomitant]
  12. AMBIEN (ZOLPIDEM TARTRATE) [Concomitant]
  13. PREVACID (LANSOPRAZOLE) [Concomitant]
  14. FLUCONAZOLE [Concomitant]
  15. GABAPENTIN [Concomitant]
  16. DESOXIMETASONE [Concomitant]
  17. TERBINAFINE [Concomitant]
  18. AMLODIPINE BESILATE [Concomitant]
  19. IBUPROFEN [Concomitant]
  20. TRIAZOLAM [Concomitant]
  21. ALPRAZOLAM [Concomitant]
  22. HYDROCHLOROTHIAZIDE [Concomitant]
  23. HYDROCODONE W/ACETAMINOPHEN (HYDROCODONE BITARTRATE, PARACETAMOL) [Concomitant]
  24. FEXOFENADINE [Concomitant]
  25. FLUOXETINE [Concomitant]
  26. ALIGN (BIFIDOBACTERIUM INFANTIS) [Concomitant]
  27. OSCAL D [Concomitant]
  28. OSTEO BI-FLEX (CHONDROITIN SULFATE, GLUCOSAMINE HYDROCHLORIDE) [Concomitant]
  29. CENTRUM (MINERALS NOS, VITAMINS NOS) [Concomitant]

REACTIONS (3)
  - Atypical femur fracture [None]
  - Stress fracture [None]
  - Pain in extremity [None]
